FAERS Safety Report 15554699 (Version 1)
Quarter: 2018Q4

REPORT INFORMATION
  Report Type: Spontaneous
  Country: US (occurrence: US)
  Receive Date: 20181026
  Receipt Date: 20181026
  Transmission Date: 20190205
  Serious: Yes (Hospitalization, Other)
  Sender: FDA-Public Use
  Company Number: US-JNJFOC-20181029592

PATIENT
  Age: 59 Year
  Sex: Female

DRUGS (11)
  1. DARZALEX [Suspect]
     Active Substance: DARATUMUMAB
     Indication: PLASMA CELL MYELOMA
     Route: 042
  2. DEXAMETHASONE. [Concomitant]
     Active Substance: DEXAMETHASONE
  3. ATOVAQUONE. [Concomitant]
     Active Substance: ATOVAQUONE
  4. DOCUSATE [Concomitant]
     Active Substance: DOCUSATE
  5. ACYCLOVIR. [Concomitant]
     Active Substance: ACYCLOVIR
  6. HYDROMORPHONE [Concomitant]
     Active Substance: HYDROMORPHONE
  7. METFORMIN [Concomitant]
     Active Substance: METFORMIN HYDROCHLORIDE
  8. FAMOTIDINE. [Concomitant]
     Active Substance: FAMOTIDINE
  9. ONDANSETRON [Concomitant]
     Active Substance: ONDANSETRON
  10. ALLOPURINOL. [Concomitant]
     Active Substance: ALLOPURINOL
  11. METOCLOPRAMIDE. [Concomitant]
     Active Substance: METOCLOPRAMIDE

REACTIONS (8)
  - Nausea [Unknown]
  - Headache [Unknown]
  - Musculoskeletal pain [Unknown]
  - Halo vision [Unknown]
  - Chest discomfort [Unknown]
  - Angle closure glaucoma [Unknown]
  - Thrombocytopenia [Unknown]
  - Infusion related reaction [Unknown]
